FAERS Safety Report 6091378-4 (Version None)
Quarter: 2009Q1

REPORT INFORMATION
  Report Type: 
  Country: None (occurrence: None)
  Receive Date: 20090225
  Receipt Date: 20081104
  Transmission Date: 20090719
  Serious: No
  Sender: FDA-Public Use
  Company Number: A0754790A

PATIENT
  Age: 45 Year
  Sex: Female

DRUGS (3)
  1. VERAMYST [Suspect]
     Dosage: 2SPR TWICE PER DAY
     Route: 045
     Dates: start: 20080922
  2. FLORINEF [Concomitant]
  3. TOPROL-XL [Concomitant]

REACTIONS (5)
  - DERMATITIS CONTACT [None]
  - HYPERSENSITIVITY [None]
  - HYPOAESTHESIA FACIAL [None]
  - PARAESTHESIA [None]
  - PRURITUS [None]
